FAERS Safety Report 4880747-3 (Version None)
Quarter: 2006Q1

REPORT INFORMATION
  Report Type: 
  Country: None (occurrence: None)
  Receive Date: 20060111
  Receipt Date: 20051018
  Transmission Date: 20060701
  Serious: No
  Sender: FDA-Public Use
  Company Number: 2005S1000228

PATIENT
  Age: 74 Year
  Weight: 97 kg

DRUGS (8)
  1. CUBICIN [Suspect]
     Indication: POSTOPERATIVE WOUND INFECTION
     Dosage: 400 MG; Q24H; IV
     Route: 042
     Dates: start: 20050929
  2. RIFAMPIN [Concomitant]
  3. LOVENOX [Concomitant]
  4. VICODIN [Concomitant]
  5. PREDNISONE [Concomitant]
  6. DIPHENHDYDRAMIDE [Concomitant]
  7. ASCORBIC ACID [Concomitant]
  8. IRON [Concomitant]

REACTIONS (2)
  - RASH [None]
  - THROMBOCYTHAEMIA [None]
